FAERS Safety Report 5477939-1 (Version None)
Quarter: 2007Q4

REPORT INFORMATION
  Report Type: 
  Country: None (occurrence: None)
  Receive Date: 20071005
  Receipt Date: 20071003
  Transmission Date: 20080405
  Serious: Yes (Other)
  Sender: FDA-Public Use
  Company Number: PHMT2007CA01733

PATIENT
  Sex: Male

DRUGS (1)
  1. ENABLEX [Suspect]
     Indication: POLLAKIURIA
     Dosage: UNK, EARLY IN THE MORNING

REACTIONS (3)
  - CONFUSIONAL STATE [None]
  - DEMENTIA [None]
  - DISTURBANCE IN ATTENTION [None]
